FAERS Safety Report 17668675 (Version 4)
Quarter: 2022Q3

REPORT INFORMATION
  Report Type: Spontaneous
  Country: CO (occurrence: CO)
  Receive Date: 20200415
  Receipt Date: 20220711
  Transmission Date: 20221027
  Serious: Yes (Life-Threatening, Hospitalization, Other)
  Sender: FDA-Public Use
  Company Number: CO-PFIZER INC-2020152809

PATIENT
  Age: 54 Year
  Sex: Female

DRUGS (3)
  1. ENBREL [Suspect]
     Active Substance: ETANERCEPT
     Indication: Rheumatoid arthritis
     Dosage: 50 MG, UNK
     Route: 058
     Dates: start: 201905
  2. ENBREL [Suspect]
     Active Substance: ETANERCEPT
     Dosage: 50 MG
     Route: 058
     Dates: start: 2017
  3. METHOTREXATE [Concomitant]
     Active Substance: METHOTREXATE
     Dosage: UNK
     Dates: start: 2021

REACTIONS (5)
  - Peritonitis [Recovered/Resolved]
  - Pleural effusion [Recovered/Resolved]
  - Furuncle [Recovered/Resolved]
  - Large intestine perforation [Recovered/Resolved]
  - Wound [Unknown]

NARRATIVE: CASE EVENT DATE: 20191201
